FAERS Safety Report 11808981 (Version 1)
Quarter: 2015Q4

REPORT INFORMATION
  Report Type: Spontaneous
  Country: AU (occurrence: AU)
  Receive Date: 20151207
  Receipt Date: 20151207
  Transmission Date: 20160305
  Serious: Yes (Other)
  Sender: FDA-Public Use
  Company Number: AU-GLAXOSMITHKLINE-AU2015GSK173548

PATIENT
  Age: 53 Year
  Sex: Female

DRUGS (3)
  1. ADEFOVIR DIPIVOXIL. [Suspect]
     Active Substance: ADEFOVIR DIPIVOXIL
     Indication: HEPATIC CIRRHOSIS
     Dosage: 10 MG, QD
     Dates: start: 2002
  2. ENTECAVIR. [Concomitant]
     Active Substance: ENTECAVIR
     Indication: PRODUCT USED FOR UNKNOWN INDICATION
     Dosage: 1 MG, QD
     Dates: start: 200711
  3. LAMIVUDINE. [Suspect]
     Active Substance: LAMIVUDINE
     Indication: HEPATIC CIRRHOSIS
     Dosage: UNK
     Dates: start: 200110

REACTIONS (24)
  - Renal impairment [Unknown]
  - Renal salt-wasting syndrome [Unknown]
  - Lethargy [Unknown]
  - Bone pain [Recovering/Resolving]
  - Proteinuria [Recovering/Resolving]
  - Myopathy [Unknown]
  - Hypokalaemia [Unknown]
  - Blood alkaline phosphatase increased [Unknown]
  - Weight decreased [Unknown]
  - Hypocalcaemia [Unknown]
  - Bone density decreased [Unknown]
  - Glycosuria [Recovering/Resolving]
  - Aminoaciduria [Recovering/Resolving]
  - Fanconi syndrome [Unknown]
  - Hypophosphataemia [Recovering/Resolving]
  - Metabolic acidosis [Unknown]
  - Hyperparathyroidism [Unknown]
  - Vitamin D deficiency [Recovering/Resolving]
  - Rib fracture [Unknown]
  - Osteonecrosis [Unknown]
  - Hyperphosphaturia [Recovering/Resolving]
  - Osteomalacia [Unknown]
  - Drug resistance [Unknown]
  - Bone pain [Unknown]

NARRATIVE: CASE EVENT DATE: 200805
